FAERS Safety Report 24186552 (Version 1)
Quarter: 2024Q3

REPORT INFORMATION
  Report Type: Spontaneous
  Country: CN (occurrence: CN)
  Receive Date: 20240808
  Receipt Date: 20240808
  Transmission Date: 20241017
  Serious: Yes (Hospitalization)
  Sender: NOVITIUM PHARMA
  Company Number: CN-NOVITIUMPHARMA-2024CNNVP01479

PATIENT
  Age: 1 Year
  Sex: Female

DRUGS (6)
  1. DEXAMETHASONE [Suspect]
     Active Substance: DEXAMETHASONE
     Indication: Pneumococcal infection
  2. DEXAMETHASONE [Suspect]
     Active Substance: DEXAMETHASONE
     Indication: Meningitis pneumococcal
  3. VANCOMYCIN [Concomitant]
     Active Substance: VANCOMYCIN
     Indication: Pneumococcal infection
  4. VANCOMYCIN [Concomitant]
     Active Substance: VANCOMYCIN
     Indication: Meningitis pneumococcal
  5. CEFTRIAXONE [Concomitant]
     Active Substance: CEFTRIAXONE\CEFTRIAXONE SODIUM
     Indication: Pneumococcal infection
  6. CEFTRIAXONE [Concomitant]
     Active Substance: CEFTRIAXONE\CEFTRIAXONE SODIUM
     Indication: Meningitis pneumococcal

REACTIONS (1)
  - Drug interaction [Unknown]
